FAERS Safety Report 9508670 (Version 2)
Quarter: 2013Q3

REPORT INFORMATION
  Report Type: Spontaneous
  Country: US (occurrence: US)
  Receive Date: 20130909
  Receipt Date: 20130927
  Transmission Date: 20140515
  Serious: Yes (Other)
  Sender: FDA-Public Use
  Company Number: US-GLAXOSMITHKLINE-A1040436A

PATIENT
  Age: 71 Year
  Sex: Female

DRUGS (9)
  1. TYKERB [Suspect]
     Indication: BREAST CANCER
     Dosage: 1500MG PER DAY
     Route: 048
     Dates: start: 20130225, end: 201305
  2. EXEMESTANE [Concomitant]
     Dosage: 25MG PER DAY
     Route: 065
  3. FLUCONAZOLE [Concomitant]
     Dosage: 200MG UNKNOWN
     Route: 065
  4. LOPERAMIDE 2MG [Concomitant]
     Route: 065
  5. CEFUROXIME [Concomitant]
  6. ZOFRAN [Concomitant]
     Dosage: 8MG UNKNOWN
     Route: 065
  7. CARVEDILOL [Concomitant]
     Dosage: 3.125MG UNKNOWN
     Route: 048
  8. LIDODERM [Concomitant]
     Route: 062
  9. GENERLAC SOLUTION [Concomitant]
     Route: 065

REACTIONS (3)
  - Urinary tract infection [Unknown]
  - Diarrhoea [Unknown]
  - Dehydration [Unknown]
